FAERS Safety Report 20178324 (Version 1)
Quarter: 2021Q4

REPORT INFORMATION
  Report Type: Report from Study
  Country: DE (occurrence: DE)
  Receive Date: 20211213
  Receipt Date: 20211213
  Transmission Date: 20220303
  Serious: Yes (Other)
  Sender: FDA-Public Use
  Company Number: DE-SUN PHARMACEUTICAL INDUSTRIES LTD-2021RR-318657

PATIENT
  Age: 86 Year
  Sex: Male
  Weight: 74 kg

DRUGS (6)
  1. SONIDEGIB [Suspect]
     Active Substance: SONIDEGIB
     Indication: Basal cell carcinoma
     Dosage: 200 MILLIGRAM, DAILY
     Route: 048
     Dates: start: 20190328, end: 20210812
  2. IBUPROFEN [Concomitant]
     Active Substance: IBUPROFEN
     Indication: Pre-existing disease
     Dosage: 400 MILLIGRAM, UNK
     Route: 048
     Dates: start: 20180612
  3. RAMIPRIL [Concomitant]
     Active Substance: RAMIPRIL
     Indication: Pre-existing disease
     Dosage: 5 MILLIGRAM, DAILY
     Route: 048
     Dates: start: 2012
  4. Nebivolol tablets [Concomitant]
     Indication: Pre-existing disease
     Dosage: 5 MILLIGRAM, DAILY
     Route: 048
     Dates: start: 2012
  5. Metformin tablets [Concomitant]
     Indication: Pre-existing disease
     Dosage: 1000 MILLIGRAM, DAILY
     Route: 048
     Dates: start: 2013
  6. Dexamytrex Eyedrops [Concomitant]
     Indication: Prophylaxis
     Dosage: 4 APPLICATION, DAILY
     Route: 031
     Dates: start: 20190822, end: 20191217

REACTIONS (3)
  - Hyperkalaemia [Recovered/Resolved]
  - Asthenia [Unknown]
  - Muscle spasms [Unknown]

NARRATIVE: CASE EVENT DATE: 20210812
